FAERS Safety Report 25247132 (Version 1)
Quarter: 2025Q2

REPORT INFORMATION
  Report Type: Other
  Country: CH (occurrence: CH)
  Receive Date: 20250428
  Receipt Date: 20250428
  Transmission Date: 20250716
  Serious: Yes (Hospitalization, Other)
  Sender: AMNEAL
  Company Number: CH-AMNEAL PHARMACEUTICALS-2025-AMRX-01569

PATIENT

DRUGS (21)
  1. ONGENTYS [Suspect]
     Active Substance: OPICAPONE
     Indication: Product used for unknown indication
     Dosage: 50 MILLIGRAM, QD
     Route: 065
     Dates: start: 20220924
  2. CLOZAPINE [Suspect]
     Active Substance: CLOZAPINE
     Indication: Product used for unknown indication
     Dosage: 12.5 MILLIGRAM, BID
     Route: 065
     Dates: start: 20230728
  3. PREGABALIN [Suspect]
     Active Substance: PREGABALIN
     Indication: Product used for unknown indication
     Route: 065
     Dates: start: 20231021, end: 202502
  4. PREGABALIN [Suspect]
     Active Substance: PREGABALIN
     Dosage: 100 MILLIGRAM, BID
     Route: 065
     Dates: start: 202502, end: 2025
  5. PREGABALIN [Suspect]
     Active Substance: PREGABALIN
     Route: 065
     Dates: start: 20250315, end: 20250315
  6. PREGABALIN [Suspect]
     Active Substance: PREGABALIN
     Route: 065
     Dates: start: 20250319
  7. CARBIDOPA LEVODOPA [Suspect]
     Active Substance: CARBIDOPA\LEVODOPA
     Indication: Product used for unknown indication
     Dosage: 1 DOSAGE FORM, QD
     Route: 065
     Dates: start: 20230728
  8. BENSERAZIDE\LEVODOPA [Suspect]
     Active Substance: BENSERAZIDE\LEVODOPA
     Indication: Product used for unknown indication
     Route: 065
     Dates: end: 20250312
  9. BENSERAZIDE\LEVODOPA [Suspect]
     Active Substance: BENSERAZIDE\LEVODOPA
     Route: 065
     Dates: start: 20250313
  10. ESOMEPRAZOLE [Suspect]
     Active Substance: ESOMEPRAZOLE
     Indication: Product used for unknown indication
     Dosage: 1 DOSAGE FORM, QD, MAX
     Route: 065
     Dates: start: 20250318, end: 20250321
  11. VENLAFAXINE [Suspect]
     Active Substance: VENLAFAXINE HYDROCHLORIDE
     Indication: Product used for unknown indication
     Dosage: 150 MILLIGRAM, QD
     Route: 065
     Dates: start: 20241210, end: 20250321
  12. VENLAFAXINE [Suspect]
     Active Substance: VENLAFAXINE HYDROCHLORIDE
     Dosage: 75 MILLIGRAM, QD
     Route: 065
     Dates: start: 20250322
  13. ALLOPURINOL [Concomitant]
     Active Substance: ALLOPURINOL
     Indication: Product used for unknown indication
     Dosage: 150 MILLIGRAM, 1 /DAY
     Route: 065
     Dates: start: 20200522
  14. ACETAMINOPHEN [Concomitant]
     Active Substance: ACETAMINOPHEN
     Indication: Product used for unknown indication
     Route: 065
  15. ACETAMINOPHEN [Concomitant]
     Active Substance: ACETAMINOPHEN
     Route: 065
     Dates: start: 20250318
  16. VITAMIN D3 [Concomitant]
     Active Substance: CHOLECALCIFEROL
     Indication: Product used for unknown indication
     Route: 065
     Dates: start: 20230814, end: 20250317
  17. FOLIC ACID [Concomitant]
     Active Substance: FOLIC ACID
     Indication: Product used for unknown indication
     Dosage: 5 MILLIGRAM, 1 /DAY
     Route: 065
     Dates: start: 20250310
  18. MIDODRINE HYDROCHLORIDE [Concomitant]
     Active Substance: MIDODRINE HYDROCHLORIDE
     Indication: Product used for unknown indication
     Dosage: 2.5 (UNITS NOT SPECIFIED) THREE TIMES DAIL
     Route: 065
     Dates: start: 20250319
  19. ENOXAPARIN SODIUM [Concomitant]
     Active Substance: ENOXAPARIN SODIUM
     Indication: Product used for unknown indication
     Dosage: 40 MILLIGRAM, 1 /DAY
     Route: 058
     Dates: start: 20250318
  20. CHOLECALCIFEROL [Concomitant]
     Active Substance: CHOLECALCIFEROL
     Indication: Product used for unknown indication
     Dosage: 400 IU INTERNATIONAL UNIT(S), 1 /DAY
     Route: 048
     Dates: start: 20250317
  21. PANTOPRAZOLE [PANTOPRAZOLE SODIUM] [Concomitant]
     Indication: Product used for unknown indication
     Dosage: 40 MILLIGRAM, 1 /DAY AS NEEDED
     Route: 065
     Dates: start: 20250227, end: 20250315

REACTIONS (5)
  - Depressed level of consciousness [Recovered/Resolved]
  - Depressed level of consciousness [Recovered/Resolved]
  - Dyskinesia [Recovered/Resolved]
  - Drug interaction [Not Recovered/Not Resolved]
  - Drug interaction [Not Recovered/Not Resolved]

NARRATIVE: CASE EVENT DATE: 20241210
